FAERS Safety Report 9219146 (Version 1)
Quarter: 2013Q2

REPORT INFORMATION
  Report Type: Spontaneous
  Country: AR (occurrence: AR)
  Receive Date: 20130409
  Receipt Date: 20130409
  Transmission Date: 20140414
  Serious: Yes (Death)
  Sender: FDA-Public Use
  Company Number: PHHY2013AR034123

PATIENT
  Sex: Female

DRUGS (1)
  1. IMATINIB [Suspect]
     Indication: LEUKAEMIA
     Dosage: UNK

REACTIONS (1)
  - Death [Fatal]
